FAERS Safety Report 7904661-1 (Version None)
Quarter: 2011Q4

REPORT INFORMATION
  Report Type: 
  Country: None (occurrence: None)
  Receive Date: 20111109
  Receipt Date: 20111102
  Transmission Date: 20120403
  Serious: Yes (Other)
  Sender: FDA-Public Use
  Company Number: US-GLAXOSMITHKLINE-A0951648A

PATIENT
  Sex: Male

DRUGS (6)
  1. WARFARIN SODIUM [Suspect]
  2. ATENOLOL [Concomitant]
  3. GLYBURIDE [Concomitant]
  4. KLOR-CON [Concomitant]
  5. ADVAIR DISKUS 100/50 [Suspect]
     Indication: CHRONIC OBSTRUCTIVE PULMONARY DISEASE
     Dosage: 1PUFF PER DAY
     Route: 055
     Dates: start: 20090101
  6. EPLERENONE [Concomitant]

REACTIONS (2)
  - ATRIAL FIBRILLATION [None]
  - SKIN DISCOLOURATION [None]
